FAERS Safety Report 11186114 (Version 3)
Quarter: 2015Q3

REPORT INFORMATION
  Report Type: Report from Study
  Country: RO (occurrence: RO)
  Receive Date: 20150612
  Receipt Date: 20150702
  Transmission Date: 20151125
  Serious: Yes (Death, Life-Threatening, Hospitalization)
  Sender: FDA-Public Use
  Company Number: RO-ABBVIE-15P-135-1407108-00

PATIENT
  Age: 69 Year
  Sex: Male

DRUGS (5)
  1. DETRALEX [Concomitant]
     Active Substance: DIOSMIN\HESPERIDIN
     Indication: PERIPHERAL VENOUS DISEASE
  2. DUODOPA [Suspect]
     Active Substance: CARBIDOPA\LEVODOPA
     Indication: PARKINSON^S DISEASE
     Dosage: CR 8 ML/H; ED 4 ML/H / 24 H
     Route: 050
     Dates: start: 20140228
  3. EXELON [Concomitant]
     Active Substance: RIVASTIGMINE TARTRATE
     Indication: MIXED DEMENTIA
  4. GERODORM [Concomitant]
     Indication: PRODUCT USED FOR UNKNOWN INDICATION
     Dosage: 0-0-1
  5. LEPONEX [Concomitant]
     Active Substance: CLOZAPINE
     Indication: BLOOD ETHANOL INCREASED
     Dosage: 1/2-1/2-1/DAY

REACTIONS (7)
  - Cardio-respiratory arrest [Fatal]
  - Cardiac arrest [Fatal]
  - Lung disorder [Unknown]
  - Bradycardia [Fatal]
  - Pneumonia [Unknown]
  - Condition aggravated [Fatal]
  - Coma [Fatal]

NARRATIVE: CASE EVENT DATE: 20150609
